FAERS Safety Report 6781177-X (Version None)
Quarter: 2010Q2

REPORT INFORMATION
  Report Type: 
  Country: None (occurrence: None)
  Receive Date: 20100621
  Receipt Date: 20100610
  Transmission Date: 20101027
  Serious: Yes (Hospitalization)
  Sender: FDA-Public Use
  Company Number: FR-PFIZER INC-2010073371

PATIENT
  Age: 85 Year
  Sex: Male

DRUGS (9)
  1. XANAX [Suspect]
     Dosage: 1 DF, 1X/DAY
     Route: 048
  2. ZOLPIDEM [Suspect]
     Dosage: 1 DF, 1X/DAY
     Route: 048
  3. DITROPAN [Concomitant]
     Dosage: 1 DF, 1X/DAY
     Route: 048
     Dates: end: 20091101
  4. COVERSYL [Concomitant]
     Dosage: UNK
  5. LASIX [Concomitant]
     Dosage: UNK
  6. KARDEGIC [Concomitant]
     Dosage: UNK
  7. INIPOMP [Concomitant]
     Dosage: UNK
  8. VITAMIN C [Concomitant]
     Dosage: UNK
  9. OROCAL [Concomitant]
     Dosage: UNK

REACTIONS (1)
  - FALL [None]
